FAERS Safety Report 9352984 (Version 1)
Quarter: 2013Q2

REPORT INFORMATION
  Report Type: Spontaneous
  Country: US (occurrence: None)
  Receive Date: 20130614
  Receipt Date: 20130614
  Transmission Date: 20140414
  Serious: No
  Sender: FDA-Public Use
  Company Number: None

PATIENT
  Age: 33 Year
  Sex: Male
  Weight: 115.67 kg

DRUGS (2)
  1. ESCITALOPRAM [Suspect]
     Dates: start: 201202
  2. ESCITALOPRAM [Suspect]
     Dates: start: 201202

REACTIONS (4)
  - Anger [None]
  - Anxiety [None]
  - Diarrhoea [None]
  - Product substitution issue [None]
